FAERS Safety Report 17162381 (Version 1)
Quarter: 2019Q4

REPORT INFORMATION
  Report Type: Report from Study
  Country: CO (occurrence: CO)
  Receive Date: 20191217
  Receipt Date: 20191217
  Transmission Date: 20200122
  Serious: Yes (Other)
  Sender: FDA-Public Use
  Company Number: CO-ROCHE-2429966

PATIENT
  Sex: Female

DRUGS (1)
  1. XELODA [Suspect]
     Active Substance: CAPECITABINE
     Indication: PRODUCT USED FOR UNKNOWN INDICATION
     Route: 048

REACTIONS (11)
  - Movement disorder [Recovered/Resolved]
  - Feeling abnormal [Unknown]
  - Skin discolouration [Unknown]
  - Necrosis [Recovered/Resolved]
  - Paraesthesia [Unknown]
  - Hypoaesthesia [Unknown]
  - Dry skin [Unknown]
  - Malaise [Recovered/Resolved]
  - Nail discolouration [Recovered/Resolved]
  - Blister [Recovered/Resolved]
  - Myalgia [Recovered/Resolved]
